FAERS Safety Report 15699642 (Version 1)
Quarter: 2018Q4

REPORT INFORMATION
  Report Type: Spontaneous
  Country: US (occurrence: US)
  Receive Date: 20181207
  Receipt Date: 20181207
  Transmission Date: 20190205
  Serious: Yes (Hospitalization, Other)
  Sender: FDA-Public Use
  Company Number: US-ABBVIE-18S-163-2578097-00

PATIENT
  Age: 60 Year
  Sex: Female

DRUGS (2)
  1. KEPPRA [Suspect]
     Active Substance: LEVETIRACETAM
     Indication: SEIZURE
     Route: 065
  2. DEPAKOTE [Suspect]
     Active Substance: DIVALPROEX SODIUM
     Indication: SEIZURE
     Route: 048

REACTIONS (5)
  - Abnormal behaviour [Unknown]
  - Agitation [Not Recovered/Not Resolved]
  - Speech disorder [Unknown]
  - Psychotic disorder [Unknown]
  - Paranoia [Not Recovered/Not Resolved]
